FAERS Safety Report 23645276 (Version 1)
Quarter: 2024Q1

REPORT INFORMATION
  Report Type: Spontaneous
  Country: FR (occurrence: FR)
  Receive Date: 20240318
  Receipt Date: 20240318
  Transmission Date: 20240409
  Serious: Yes (Hospitalization)
  Sender: FDA-Public Use
  Company Number: None

PATIENT
  Age: 71 Year
  Sex: Female
  Weight: 47 kg

DRUGS (11)
  1. METHOTREXATE [Suspect]
     Active Substance: METHOTREXATE
     Indication: Acute lymphocytic leukaemia
     Dosage: TIME INTERVAL: TOTAL
     Route: 037
     Dates: start: 20240212, end: 20240212
  2. METHOTREXATE [Suspect]
     Active Substance: METHOTREXATE
     Indication: Acute lymphocytic leukaemia
     Dosage: TIME INTERVAL: TOTAL
     Route: 037
     Dates: start: 20240205, end: 20240205
  3. PIPERACILLIN AND TAZOBACTAM [Suspect]
     Active Substance: PIPERACILLIN SODIUM\TAZOBACTAM SODIUM
     Indication: Bacteraemia
     Dosage: 4G X 4/D/4 G/0.5 G,PIPERACILLIN TAZOBACTAM VIATRIS
     Route: 042
     Dates: start: 20240126, end: 20240216
  4. VALACYCLOVIR HYDROCHLORIDE [Suspect]
     Active Substance: VALACYCLOVIR HYDROCHLORIDE
     Indication: Infection prophylaxis
     Route: 048
     Dates: start: 20240203, end: 20240216
  5. CYTARABINE [Suspect]
     Active Substance: CYTARABINE
     Indication: Acute lymphocytic leukaemia
     Dosage: TIME INTERVAL: TOTAL
     Route: 037
     Dates: start: 20240205, end: 20240205
  6. CYTARABINE [Suspect]
     Active Substance: CYTARABINE
     Indication: Acute lymphocytic leukaemia
     Dosage: TIME INTERVAL: TOTAL
     Route: 037
     Dates: start: 20240212, end: 20240212
  7. VINCRISTINE [Suspect]
     Active Substance: VINCRISTINE
     Indication: Acute lymphocytic leukaemia
     Dosage: TIME INTERVAL: TOTAL: VINCRISTIN SULFATE
     Route: 042
     Dates: start: 20240201, end: 20240201
  8. VINCRISTINE [Suspect]
     Active Substance: VINCRISTINE
     Indication: Acute lymphocytic leukaemia
     Dosage: TIME INTERVAL: TOTAL
     Route: 042
     Dates: start: 20240215, end: 20240215
  9. VINCRISTINE [Suspect]
     Active Substance: VINCRISTINE
     Indication: Acute lymphocytic leukaemia
     Dosage: TIME INTERVAL: TOTAL
     Route: 042
     Dates: start: 20240208, end: 20240208
  10. BESPONSA [Suspect]
     Active Substance: INOTUZUMAB OZOGAMICIN
     Indication: Acute lymphocytic leukaemia
     Dosage: TIME INTERVAL: TOTAL
     Route: 042
     Dates: start: 20240208, end: 20240208
  11. BESPONSA [Suspect]
     Active Substance: INOTUZUMAB OZOGAMICIN
     Indication: Acute lymphocytic leukaemia
     Dosage: TIME INTERVAL: TOTAL
     Route: 042
     Dates: start: 20240212, end: 20240212

REACTIONS (1)
  - Toxic encephalopathy [Not Recovered/Not Resolved]

NARRATIVE: CASE EVENT DATE: 20240215
